FAERS Safety Report 5532332-8 (Version None)
Quarter: 2007Q4

REPORT INFORMATION
  Report Type: 
  Country: None (occurrence: None)
  Receive Date: 20071129
  Receipt Date: 20071121
  Transmission Date: 20080405
  Serious: Yes (Other)
  Sender: FDA-Public Use
  Company Number: 2007335806

PATIENT
  Age: 7 Year
  Sex: Male

DRUGS (1)
  1. LISTERINE AGENT COOL BLUE BUBBLE BLAST (NO ACTIVE INGREDIENT) [Suspect]
     Indication: DENTAL PLAQUE
     Dosage: ORAL
     Route: 048
     Dates: start: 20060101

REACTIONS (2)
  - DENTAL CARIES [None]
  - TOOTH ABSCESS [None]
